FAERS Safety Report 4360429-7 (Version None)
Quarter: 2004Q2

REPORT INFORMATION
  Report Type: 
  Country: None (occurrence: None)
  Receive Date: 20040514
  Receipt Date: 20040503
  Transmission Date: 20050107
  Serious: Yes (Hospitalization, Other)
  Sender: FDA-Public Use
  Company Number: 2004022816

PATIENT
  Age: 53 Year
  Sex: Male

DRUGS (14)
  1. ZOLOFT [Suspect]
     Indication: DEPRESSION
     Dosage: 100 MG (DAILY), UNKNOWN (SEE IMAGE)
     Route: 065
     Dates: start: 20040303, end: 20040330
  2. NAPROXEN [Suspect]
     Indication: PAIN
     Dosage: 1000 MG (500 MG, 2 IN 1 D); ORAL (SEE IMAGE)
     Route: 048
     Dates: start: 20040303, end: 20040315
  3. CELECOXIB [Concomitant]
  4. VALPROATE SODIUM [Concomitant]
  5. METOPROLOL [Concomitant]
  6. AMIODARONE HCL [Concomitant]
  7. ATORVASTATIN CALCIUM [Concomitant]
  8. FAMOTIDINE [Concomitant]
  9. TRAZODONE HCL [Concomitant]
  10. GLYCERYL TRINITRATE [Concomitant]
  11. LISINOPRIL [Concomitant]
  12. FUROSEMIDE [Concomitant]
  13. ASPIRIN [Concomitant]
  14. VICODIN [Concomitant]

REACTIONS (5)
  - DYSPNOEA [None]
  - HAEMATOCRIT DECREASED [None]
  - HAEMOGLOBIN DECREASED [None]
  - HYPONATRAEMIA [None]
  - RED BLOOD CELL COUNT DECREASED [None]
